FAERS Safety Report 15456471 (Version 3)
Quarter: 2020Q4

REPORT INFORMATION
  Report Type: Report from Study
  Country: FR (occurrence: FR)
  Receive Date: 20181002
  Receipt Date: 20201208
  Transmission Date: 20210113
  Serious: Yes (Hospitalization)
  Sender: FDA-Public Use
  Company Number: FR-SA-2018SA265884

PATIENT

DRUGS (8)
  1. AFLIBERCEPT [Suspect]
     Active Substance: AFLIBERCEPT
     Dosage: 287 MG, QCY
     Route: 042
     Dates: start: 20180627, end: 20180627
  2. FLUOROURACIL. [Suspect]
     Active Substance: FLUOROURACIL
     Indication: COLORECTAL CANCER METASTATIC
     Dosage: 750 MG, QCY
     Route: 042
     Dates: start: 20180906, end: 20180906
  3. FOLINIC ACID [Suspect]
     Active Substance: LEUCOVORIN
     Indication: COLORECTAL CANCER METASTATIC
     Dosage: 744 MG, QCY
     Route: 042
     Dates: start: 20180906, end: 20180906
  4. FLUOROURACIL. [Suspect]
     Active Substance: FLUOROURACIL
     Dosage: 750 MG, QCY
     Route: 042
     Dates: start: 20180627, end: 20180627
  5. FLUOROURACIL. [Suspect]
     Active Substance: FLUOROURACIL
     Dosage: 4450 MG, QCY
     Route: 040
     Dates: start: 20180906, end: 20180906
  6. AFLIBERCEPT [Suspect]
     Active Substance: AFLIBERCEPT
     Indication: COLORECTAL CANCER METASTATIC
     Dosage: 287 MG, QCY
     Route: 042
     Dates: start: 20180906, end: 20180906
  7. FLUOROURACIL. [Suspect]
     Active Substance: FLUOROURACIL
     Dosage: 4450 MG, QCY
     Route: 040
     Dates: start: 20180627, end: 20180627
  8. FOLINIC ACID [Suspect]
     Active Substance: LEUCOVORIN
     Dosage: 744 MG, QCY
     Route: 042
     Dates: start: 20180627, end: 20180627

REACTIONS (4)
  - Disorientation [Recovered/Resolved]
  - Confusional state [Recovered/Resolved]
  - Cerebrovascular accident [Recovered/Resolved]
  - Agitation [Recovered/Resolved]

NARRATIVE: CASE EVENT DATE: 20180907
